FAERS Safety Report 18843053 (Version 1)
Quarter: 2021Q1

REPORT INFORMATION
  Report Type: Report from Study
  Country: US (occurrence: US)
  Receive Date: 20210203
  Receipt Date: 20210203
  Transmission Date: 20210419
  Serious: No
  Sender: FDA-Public Use
  Company Number: US-EXELIXIS-CABO-20027520

PATIENT
  Sex: Female

DRUGS (2)
  1. CABOMETYX [Suspect]
     Active Substance: CABOZANTINIB S-MALATE
     Indication: HEPATIC CANCER
     Dosage: 60 MG, QD
     Dates: start: 202001
  2. CABOMETYX [Suspect]
     Active Substance: CABOZANTINIB S-MALATE
     Dosage: 20 MG, QD

REACTIONS (5)
  - Asthenia [Unknown]
  - Dyschromatopsia [Unknown]
  - Abdominal pain upper [Unknown]
  - Muscular weakness [Unknown]
  - Fatigue [Unknown]
